FAERS Safety Report 5104619-4 (Version None)
Quarter: 2006Q3

REPORT INFORMATION
  Report Type: 
  Country: None (occurrence: None)
  Receive Date: 20060914
  Receipt Date: 20060809
  Transmission Date: 20061208
  Serious: No
  Sender: FDA-Public Use
  Company Number: US-BRISTOL-MYERS SQUIBB COMPANY-13470075

PATIENT
  Age: 29 Year
  Sex: Female
  Weight: 98 kg

DRUGS (7)
  1. ABILIFY [Suspect]
     Indication: MAJOR DEPRESSION
     Route: 048
     Dates: start: 20030801
  2. ABILIFY [Suspect]
     Indication: PSYCHOTIC DISORDER
     Route: 048
     Dates: start: 20030801
  3. BUSPAR [Suspect]
     Dates: start: 20060201
  4. TRAZODONE HCL [Suspect]
     Dates: start: 20060703, end: 20060731
  5. WELLBUTRIN XL [Suspect]
     Dates: start: 20031001
  6. CYMBALTA [Suspect]
     Dates: start: 20050301
  7. KLONOPIN [Suspect]
     Dates: start: 20060713, end: 20060801

REACTIONS (1)
  - PREGNANCY [None]
